FAERS Safety Report 8305592 (Version 3)
Quarter: 2013Q3

REPORT INFORMATION
  Report Type: Spontaneous
  Country: US (occurrence: US)
  Receive Date: 20111221
  Receipt Date: 20130726
  Transmission Date: 20140515
  Serious: Yes (Hospitalization, Other)
  Sender: FDA-Public Use
  Company Number: US-US-EMD SERONO, INC.-233903K09USA

PATIENT
  Age: 68 Year
  Sex: Female
  Weight: 84 kg

DRUGS (19)
  1. REBIF [Suspect]
     Indication: MULTIPLE SCLEROSIS
     Route: 058
     Dates: start: 20030529, end: 200401
  2. REBIF [Suspect]
     Route: 058
     Dates: start: 200409, end: 200603
  3. REBIF [Suspect]
     Route: 058
     Dates: start: 20061208
  4. GLIPIZIDE [Concomitant]
     Indication: DIABETES MELLITUS
     Route: 048
  5. GLUCOPHAGE [Concomitant]
     Indication: DIABETES MELLITUS
  6. ACTOS [Concomitant]
     Indication: DIABETES MELLITUS
  7. LOTREL [Concomitant]
     Indication: HYPERTENSION
  8. ZOCOR [Concomitant]
     Indication: BLOOD CHOLESTEROL INCREASED
     Route: 065
  9. TRICOR [Concomitant]
     Indication: BLOOD CHOLESTEROL INCREASED
  10. METAMUCIL [Concomitant]
     Indication: DIVERTICULUM
  11. NORVASC [Concomitant]
     Indication: HYPERTENSION
  12. LISINOPRIL [Concomitant]
     Indication: HYPERTENSION
  13. TRILIPIX [Concomitant]
     Indication: BLOOD CHOLESTEROL INCREASED
  14. PRILOSEC [Concomitant]
     Indication: GASTRIC ULCER
  15. BACLOFEN [Concomitant]
     Indication: PRODUCT USED FOR UNKNOWN INDICATION
     Route: 048
  16. WARFARIN [Concomitant]
     Indication: PRODUCT USED FOR UNKNOWN INDICATION
     Dosage: 1-5 TABLETS DAILY
     Route: 048
  17. CYANOCOBALAMIN [Concomitant]
     Indication: PRODUCT USED FOR UNKNOWN INDICATION
  18. FERROUS SULFATE [Concomitant]
     Indication: PRODUCT USED FOR UNKNOWN INDICATION
     Route: 048
  19. PRAVASTATIN [Concomitant]
     Indication: PRODUCT USED FOR UNKNOWN INDICATION
     Route: 048

REACTIONS (10)
  - Arthritis [Recovering/Resolving]
  - Deep vein thrombosis [Recovering/Resolving]
  - Cellulitis [Not Recovered/Not Resolved]
  - Immune system disorder [Not Recovered/Not Resolved]
  - Spinal column stenosis [Not Recovered/Not Resolved]
  - Vaginal prolapse [Not Recovered/Not Resolved]
  - Anaemia [Not Recovered/Not Resolved]
  - Contrast media allergy [Not Recovered/Not Resolved]
  - Thyroid neoplasm [Not Recovered/Not Resolved]
  - Vertigo [Not Recovered/Not Resolved]
